FAERS Safety Report 5444142-0 (Version None)
Quarter: 2007Q3

REPORT INFORMATION
  Report Type: 
  Country: None (occurrence: None)
  Receive Date: 20070904
  Receipt Date: 20070827
  Transmission Date: 20080115
  Serious: Yes (Other)
  Sender: FDA-Public Use
  Company Number: 2007SP017332

PATIENT
  Sex: Male

DRUGS (3)
  1. INTRON A [Suspect]
     Indication: HEPATITIS C
     Dates: start: 19990101
  2. PEG-INTRON [Suspect]
     Indication: HEPATITIS C
     Dates: start: 19990101
  3. PEGASYS [Suspect]
     Indication: HEPATITIS C
     Dates: start: 19990101

REACTIONS (2)
  - HEPATIC CIRRHOSIS [None]
  - NO THERAPEUTIC RESPONSE [None]
